FAERS Safety Report 10907266 (Version 1)
Quarter: 2015Q1

REPORT INFORMATION
  Report Type: Report from Study
  Country: US (occurrence: None)
  Receive Date: 20150309
  Receipt Date: 20150309
  Transmission Date: 20150721
  Serious: Yes (Other)
  Sender: FDA-Public Use
  Company Number: US-001258

PATIENT
  Sex: Female

DRUGS (2)
  1. SOLUTION FOR PARENTERAL NUTRITION [Concomitant]
  2. GATTEX [Suspect]
     Active Substance: TEDUGLUTIDE\WATER
     Indication: SHORT-BOWEL SYNDROME
     Route: 058
     Dates: start: 20140611

REACTIONS (7)
  - Abdominal pain [None]
  - Asthenia [None]
  - Tearfulness [None]
  - Nausea [None]
  - Dizziness [None]
  - Drug dose omission [None]
  - Haematochezia [None]

NARRATIVE: CASE EVENT DATE: 2014
